FAERS Safety Report 16400753 (Version 1)
Quarter: 2019Q2

REPORT INFORMATION
  Report Type: Spontaneous
  Country: DE (occurrence: DE)
  Receive Date: 20190606
  Receipt Date: 20190606
  Transmission Date: 20190711
  Serious: Yes (Other)
  Sender: FDA-Public Use
  Company Number: DE-MYLANLABS-2019M1053640

PATIENT
  Age: 46 Year
  Sex: Male
  Weight: 75 kg

DRUGS (4)
  1. SEROQUEL [Concomitant]
     Active Substance: QUETIAPINE FUMARATE
     Indication: DELUSIONAL DISORDER, PERSECUTORY TYPE
     Dosage: 700MG/DAY
     Route: 048
  2. LEPONEX [Suspect]
     Active Substance: CLOZAPINE
     Indication: DELUSIONAL DISORDER, PERSECUTORY TYPE
     Dosage: 200MG/DAY
     Route: 048
     Dates: start: 20020513, end: 2002
  3. LEPONEX [Suspect]
     Active Substance: CLOZAPINE
     Dosage: 100MG/DAY
     Route: 048
     Dates: start: 2002, end: 20020630
  4. HALODOL [Concomitant]
     Active Substance: HALOPERIDOL
     Indication: DELUSIONAL DISORDER, PERSECUTORY TYPE
     Dosage: 10MG/DAY
     Route: 048

REACTIONS (2)
  - Electrocardiogram abnormal [Recovered/Resolved]
  - Ventricular extrasystoles [Recovered/Resolved]

NARRATIVE: CASE EVENT DATE: 20020513
